FAERS Safety Report 13968942 (Version 1)
Quarter: 2017Q3

REPORT INFORMATION
  Report Type: Spontaneous
  Country: GB (occurrence: GB)
  Receive Date: 20170914
  Receipt Date: 20170914
  Transmission Date: 20171128
  Serious: Yes (Hospitalization)
  Sender: FDA-Public Use
  Company Number: GB-009507513-1709GBR004553

PATIENT
  Age: 61 Year

DRUGS (9)
  1. ASPIRIN. [Concomitant]
     Active Substance: ASPIRIN
     Dosage: ONCE A DAY
  2. CREATINE [Concomitant]
     Active Substance: CREATINE
     Dosage: UNK
  3. OMEPRAZOLE. [Concomitant]
     Active Substance: OMEPRAZOLE
     Dosage: TWICE A DAY (BID)
  4. ADCAL-D3 [Concomitant]
     Active Substance: CALCIUM CARBONATE\CHOLECALCIFEROL
     Dosage: 2 DF, QD, ONCE A DAY, 750 MG/200 UNIT CAPLETS DAILY
  5. EZETIMIBE. [Suspect]
     Active Substance: EZETIMIBE
     Indication: PELVIC INFECTION
     Dosage: 10 MG, DAILY
     Route: 048
  6. RIFAMPIN. [Suspect]
     Active Substance: RIFAMPIN
     Indication: PELVIC INFECTION
     Dosage: UNK
  7. ACETAMINOPHEN. [Concomitant]
     Active Substance: ACETAMINOPHEN
     Dosage: 4 TIMES A DAY
  8. FOLIC ACID. [Concomitant]
     Active Substance: FOLIC ACID
     Dosage: 5 MG, UNK, PRESCRIBED BY THE HOSPITAL
  9. BISOPROLOL [Concomitant]
     Active Substance: BISOPROLOL
     Dosage: ONCE A DAY

REACTIONS (5)
  - Nausea [Unknown]
  - Rash maculo-papular [Unknown]
  - Vomiting [Unknown]
  - Rhabdomyolysis [Unknown]
  - Tubulointerstitial nephritis [Unknown]
